FAERS Safety Report 19185168 (Version 1)
Quarter: 2021Q2

REPORT INFORMATION
  Report Type: Spontaneous
  Country: US (occurrence: US)
  Receive Date: 20210427
  Receipt Date: 20210427
  Transmission Date: 20210717
  Serious: Yes (Other)
  Sender: FDA-Public Use
  Company Number: US-EXELA PHARMA SCIENCES, LLC-2021EXL00011

PATIENT

DRUGS (1)
  1. AKOVAZ [Suspect]
     Active Substance: EPHEDRINE SULFATE
     Indication: BLOOD PRESSURE MANAGEMENT
     Dosage: 25?45 MG
     Route: 042

REACTIONS (1)
  - Drug ineffective [Recovered/Resolved]
